FAERS Safety Report 6530184-0 (Version None)
Quarter: 2009Q4

REPORT INFORMATION
  Report Type: 
  Country: None (occurrence: None)
  Receive Date: 20091231
  Receipt Date: 20091222
  Transmission Date: 20100525
  Serious: Yes (Hospitalization)
  Sender: FDA-Public Use
  Company Number: 2009SP043366

PATIENT
  Age: 46 Year
  Sex: Female

DRUGS (3)
  1. NUVARING [Suspect]
     Indication: CONTRACEPTION
     Dosage: VAG
     Route: 067
     Dates: end: 20070901
  2. ACYCLOVIR (CON.) [Concomitant]
  3. CLEOCIN (CON.) [Concomitant]

REACTIONS (6)
  - COAGULATION FACTOR VIII LEVEL INCREASED [None]
  - HYPOTHYROIDISM [None]
  - OROPHARYNGEAL PAIN [None]
  - PLEURAL EFFUSION [None]
  - PROTEIN S DECREASED [None]
  - PULMONARY EMBOLISM [None]
